FAERS Safety Report 7414802-0 (Version None)
Quarter: 2011Q2

REPORT INFORMATION
  Report Type: 
  Country: None (occurrence: None)
  Receive Date: 20110414
  Receipt Date: 20100826
  Transmission Date: 20111010
  Serious: No
  Sender: FDA-Public Use
  Company Number: A0877897A

PATIENT
  Age: 71 Year
  Sex: Female

DRUGS (8)
  1. BENICAR [Concomitant]
  2. SYNTHROID [Concomitant]
  3. AMBIEN [Concomitant]
  4. VITAMINS [Concomitant]
  5. PREMARIN [Concomitant]
  6. ASPIRIN [Concomitant]
  7. LUXIQ [Suspect]
     Route: 061
     Dates: start: 20100820
  8. CLOBEX [Concomitant]

REACTIONS (1)
  - DYSGEUSIA [None]
